FAERS Safety Report 9283830 (Version 2)
Quarter: 2013Q4

REPORT INFORMATION
  Report Type: Spontaneous
  Country: US (occurrence: US)
  Receive Date: 20130510
  Receipt Date: 20131011
  Transmission Date: 20140711
  Serious: Yes (Death, Hospitalization)
  Sender: FDA-Public Use
  Company Number: US-B.I. PHARMACEUTICALS,INC./RIDGEFIELD-2013-BI-13181BP

PATIENT
  Age: 82 Year
  Sex: Male
  Weight: 68.04 kg

DRUGS (8)
  1. PRADAXA [Suspect]
     Indication: ANTICOAGULANT THERAPY
     Dosage: 300 MG
     Dates: start: 20110725, end: 20120913
  2. PRADAXA [Suspect]
     Indication: ATRIAL FIBRILLATION
  3. IRON [Concomitant]
  4. LIPITOR [Concomitant]
  5. VERAPAMIL [Concomitant]
  6. SPIRIVA [Concomitant]
  7. ALBUTEROL [Concomitant]
  8. ADVAIR DISKUS [Concomitant]

REACTIONS (4)
  - Pulmonary haemorrhage [Fatal]
  - Respiratory failure [Unknown]
  - Congestive cardiomyopathy [Unknown]
  - Haemorrhagic anaemia [Unknown]
